FAERS Safety Report 10040287 (Version 4)
Quarter: 2014Q3

REPORT INFORMATION
  Report Type: Report from Study
  Country: GB (occurrence: GB)
  Receive Date: 20140327
  Receipt Date: 20140915
  Transmission Date: 20150326
  Serious: Yes (Hospitalization)
  Sender: FDA-Public Use
  Company Number: GB-ROCHE-1357211

PATIENT
  Age: 14 Year
  Sex: Male
  Weight: 41.7 kg

DRUGS (28)
  1. BEVACIZUMAB [Suspect]
     Active Substance: BEVACIZUMAB
     Dosage: DATE OF LAST DOSE PRIOR TO EVENT ONSET : 12/FEB/2014.
     Route: 042
     Dates: start: 20130911
  2. BEVACIZUMAB [Suspect]
     Active Substance: BEVACIZUMAB
     Dosage: .
     Route: 042
     Dates: start: 20140212
  3. DOCUSATE SODIUM. [Concomitant]
     Active Substance: DOCUSATE SODIUM
     Route: 065
     Dates: start: 20130726
  4. COTRIMOXAZOLE [Concomitant]
     Active Substance: SULFAMETHOXAZOLE\TRIMETHOPRIM
     Route: 065
     Dates: start: 20130717
  5. CODEINE [Concomitant]
     Active Substance: CODEINE
     Route: 065
     Dates: start: 20130711
  6. CODEINE [Suspect]
     Active Substance: CODEINE
     Indication: PRODUCT USED FOR UNKNOWN INDICATION
     Dosage: UPTO 120 MG AS REQUIRED (PRN)
     Route: 065
     Dates: start: 20140225
  7. ONDANSETRON [Concomitant]
     Active Substance: ONDANSETRON
     Route: 065
     Dates: start: 20130819, end: 20140318
  8. LEVOMEPROMAZINE [Concomitant]
     Active Substance: LEVOMEPROMAZINE
     Route: 065
     Dates: start: 20130819, end: 20140318
  9. HYOSCINE HYDROBROMIDE [Concomitant]
     Active Substance: SCOPOLAMINE
     Dosage: 1 PATCH EVERY 72 HOURS?1 PATCH : 1.5 MG.
     Route: 065
     Dates: start: 20131029, end: 20140318
  10. DEXAMETHASONE. [Concomitant]
     Active Substance: DEXAMETHASONE
     Route: 048
     Dates: start: 20130704, end: 20130708
  11. BEVACIZUMAB [Suspect]
     Active Substance: BEVACIZUMAB
     Route: 042
     Dates: start: 20140312
  12. TEMOZOLOMIDE [Suspect]
     Active Substance: TEMOZOLOMIDE
     Indication: BRAIN NEOPLASM MALIGNANT
     Dosage: 0.0 FOR 5 DAYS?DATE OF LAST DOSE PRIOR TO EVENT ONSET : 29/JAN/2014.
     Route: 048
     Dates: start: 20130718
  13. TEMOZOLOMIDE [Suspect]
     Active Substance: TEMOZOLOMIDE
     Route: 048
     Dates: start: 20130925, end: 20130929
  14. DOCUSATE SODIUM. [Concomitant]
     Active Substance: DOCUSATE SODIUM
     Route: 065
     Dates: start: 20130805
  15. BEVACIZUMAB [Suspect]
     Active Substance: BEVACIZUMAB
     Route: 042
     Dates: start: 20140226
  16. TEMOZOLOMIDE [Suspect]
     Active Substance: TEMOZOLOMIDE
     Route: 048
     Dates: start: 20140129, end: 20140202
  17. CODEINE [Suspect]
     Active Substance: CODEINE
     Dosage: 120 MG 2 TO 4 TIMES DAILY
     Route: 065
     Dates: start: 20140226
  18. ONDANSETRON [Concomitant]
     Active Substance: ONDANSETRON
     Dosage: 16-24 MG
     Route: 065
     Dates: start: 20130711, end: 20140318
  19. COTRIMOXAZOLE [Concomitant]
     Active Substance: SULFAMETHOXAZOLE\TRIMETHOPRIM
     Route: 065
     Dates: start: 20130720
  20. DEXAMETHASONE. [Concomitant]
     Active Substance: DEXAMETHASONE
     Route: 048
     Dates: start: 20130614, end: 20130619
  21. DEXAMETHASONE. [Concomitant]
     Active Substance: DEXAMETHASONE
     Route: 048
     Dates: start: 20130620, end: 2013
  22. DEXAMETHASONE. [Concomitant]
     Active Substance: DEXAMETHASONE
     Route: 048
     Dates: start: 20130709, end: 20130717
  23. TEMOZOLOMIDE [Suspect]
     Active Substance: TEMOZOLOMIDE
     Dosage: DATE OF LAST DOSE PRIOR TO EVENT ONSET : 04/MAR/2014.
     Route: 048
     Dates: start: 20140228, end: 20140304
  24. CODEINE [Suspect]
     Active Substance: CODEINE
     Route: 065
     Dates: start: 20130711
  25. BEVACIZUMAB [Suspect]
     Active Substance: BEVACIZUMAB
     Indication: BRAIN NEOPLASM MALIGNANT
     Dosage: DATE OF LAST DOSE PRIOR TO EVENT ONSET : 12/FEB/2014.
     Route: 042
     Dates: start: 20130718
  26. MORPHINE [Suspect]
     Active Substance: MORPHINE
     Indication: PRODUCT USED FOR UNKNOWN INDICATION
     Route: 065
     Dates: start: 20140228, end: 20140303
  27. DEXAMETHASONE. [Concomitant]
     Active Substance: DEXAMETHASONE
     Route: 048
     Dates: start: 2013, end: 20130703
  28. SEPTRIN [Concomitant]
     Active Substance: SULFAMETHOXAZOLE\TRIMETHOPRIM
     Route: 065
     Dates: start: 20130719

REACTIONS (2)
  - Headache [Recovered/Resolved]
  - Rash [Recovered/Resolved]

NARRATIVE: CASE EVENT DATE: 20140222
